FAERS Safety Report 8210474-6 (Version None)
Quarter: 2012Q1

REPORT INFORMATION
  Report Type: 
  Country: None (occurrence: None)
  Receive Date: 20120314
  Receipt Date: 20110705
  Transmission Date: 20120608
  Serious: No
  Sender: FDA-Public Use
  Company Number: US-ASTRAZENECA-2011SE33440

PATIENT
  Age: 67 Year
  Sex: Male

DRUGS (5)
  1. TOPROL-XL [Suspect]
     Indication: ATRIAL FIBRILLATION
     Route: 048
     Dates: start: 20110413
  2. WARFARIN SODIUM [Concomitant]
  3. TOPROL-XL [Suspect]
     Route: 048
  4. TOPROL-XL [Suspect]
     Indication: HYPERTENSION
     Route: 048
     Dates: start: 20110413
  5. TOPROL-XL [Suspect]
     Route: 048

REACTIONS (6)
  - FEELING ABNORMAL [None]
  - INSOMNIA [None]
  - HEADACHE [None]
  - ABNORMAL DREAMS [None]
  - SINUSITIS [None]
  - HYPERHIDROSIS [None]
